FAERS Safety Report 13090370 (Version 2)
Quarter: 2017Q1

REPORT INFORMATION
  Report Type: Report from Study
  Country: US (occurrence: US)
  Receive Date: 20170105
  Receipt Date: 20170201
  Transmission Date: 20170428
  Serious: Yes (Other)
  Sender: FDA-Public Use
  Company Number: US-GILEAD-2017-0251738

PATIENT
  Age: 59 Year
  Sex: Female
  Weight: 131.97 kg

DRUGS (1)
  1. LEDIPASVIR/SOFOSBUVIR [Suspect]
     Active Substance: LEDIPASVIR\SOFOSBUVIR
     Indication: CHRONIC HEPATITIS C
     Dosage: 1 DF, QD
     Route: 048
     Dates: start: 2016, end: 20161223

REACTIONS (2)
  - Drug dose omission [Recovered/Resolved]
  - Chronic hepatic failure [Unknown]

NARRATIVE: CASE EVENT DATE: 2016
